FAERS Safety Report 26133406 (Version 1)
Quarter: 2025Q4

REPORT INFORMATION
  Report Type: Spontaneous
  Country: EU (occurrence: EU)
  Receive Date: 20251209
  Receipt Date: 20251209
  Transmission Date: 20260118
  Serious: Yes (Death, Other)
  Sender: AUROBINDO
  Company Number: EU-AEMPS-1780905

PATIENT
  Age: 78 Year
  Sex: Male
  Weight: 83 kg

DRUGS (3)
  1. CARBOPLATIN [Suspect]
     Active Substance: CARBOPLATIN
     Indication: Lung neoplasm malignant
     Dosage: EN CICLOS - 300 MG
     Dates: start: 20250827, end: 20251016
  2. PACLITAXEL [Suspect]
     Active Substance: PACLITAXEL
     Indication: Lung neoplasm malignant
     Dosage: EN CICLOS - 175 MG/M2
     Dates: start: 20250827, end: 20251016
  3. DEXAMETHASONE [Suspect]
     Active Substance: DEXAMETHASONE
     Indication: Chemotherapy side effect prophylaxis
     Dosage: 4 MG LA MA?ANA DE LA ADMINISTRACI?N Y LOS TRES D?AS SIGUIENTES
     Dates: start: 20250827, end: 20251019

REACTIONS (2)
  - Fournier^s gangrene [Fatal]
  - Septic shock [Fatal]

NARRATIVE: CASE EVENT DATE: 20251027
